FAERS Safety Report 12491049 (Version 1)
Quarter: 2016Q2

REPORT INFORMATION
  Report Type: Spontaneous
  Country: FR (occurrence: FR)
  Receive Date: 20160623
  Receipt Date: 20160623
  Transmission Date: 20160815
  Serious: Yes (Hospitalization, Other)
  Sender: FDA-Public Use
  Company Number: FR-ALEXION PHARMACEUTICALS INC-A201604534

PATIENT
  Age: 68 Year
  Sex: Male

DRUGS (1)
  1. SOLIRIS [Suspect]
     Active Substance: ECULIZUMAB
     Indication: PAROXYSMAL NOCTURNAL HAEMOGLOBINURIA
     Dosage: 900 MG, EVERY 15 DAYS
     Route: 042

REACTIONS (3)
  - Appendicitis [Recovered/Resolved]
  - Sepsis [Recovered/Resolved]
  - Haemolysis [Recovered/Resolved]

NARRATIVE: CASE EVENT DATE: 201605
